FAERS Safety Report 20176442 (Version 1)
Quarter: 2021Q4

REPORT INFORMATION
  Report Type: Spontaneous
  Country: US (occurrence: None)
  Receive Date: 20211210
  Receipt Date: 20211210
  Transmission Date: 20220304
  Serious: Yes (Life-Threatening, Hospitalization)
  Sender: FDA-Public Use
  Company Number: None

PATIENT
  Age: 73 Year
  Sex: Male
  Weight: 72 kg

DRUGS (1)
  1. MELOXICAM [Suspect]
     Active Substance: MELOXICAM
     Indication: Osteoarthritis
     Dosage: OTHER QUANTITY : 1 TABLET(S);?FREQUENCY : DAILY;?
     Route: 048
     Dates: start: 20210412, end: 20210510

REACTIONS (11)
  - Haemoglobin decreased [None]
  - Ulcer haemorrhage [None]
  - Eructation [None]
  - Flatulence [None]
  - Constipation [None]
  - Discomfort [None]
  - Pain [None]
  - Feeling abnormal [None]
  - Asthenia [None]
  - Syncope [None]
  - Abdominal discomfort [None]

NARRATIVE: CASE EVENT DATE: 20210514
